FAERS Safety Report 12273770 (Version 1)
Quarter: 2016Q2

REPORT INFORMATION
  Report Type: Spontaneous
  Country: DE (occurrence: DE)
  Receive Date: 20160415
  Receipt Date: 20160415
  Transmission Date: 20160815
  Serious: Yes (Life-Threatening, Hospitalization, Other)
  Sender: FDA-Public Use
  Company Number: DE-GILEAD-2016-0207967

PATIENT
  Age: 34 Year
  Sex: Male
  Weight: 51 kg

DRUGS (2)
  1. HARVONI [Suspect]
     Active Substance: LEDIPASVIR\SOFOSBUVIR
     Indication: HEPATITIS C
     Dosage: UNK
     Route: 048
     Dates: start: 20160304
  2. MIRTAZAPIN [Concomitant]
     Active Substance: MIRTAZAPINE
     Indication: DEPRESSION
     Dosage: 30 UNK, UNK
     Route: 048
     Dates: start: 20160304, end: 20160322

REACTIONS (4)
  - Overdose [Unknown]
  - Coma [Unknown]
  - Cardiac arrest [Unknown]
  - Resuscitation [Unknown]

NARRATIVE: CASE EVENT DATE: 20160322
